FAERS Safety Report 23230232 (Version 1)
Quarter: 2023Q4

REPORT INFORMATION
  Report Type: Spontaneous
  Country: US (occurrence: US)
  Receive Date: 20231127
  Receipt Date: 20231127
  Transmission Date: 20240109
  Serious: No
  Sender: FDA-Public Use
  Company Number: US-TAKEDA-2023TUS113038

PATIENT
  Sex: Female
  Weight: 98 kg

DRUGS (1)
  1. VYVANSE [Suspect]
     Active Substance: LISDEXAMFETAMINE DIMESYLATE
     Indication: Attention deficit hyperactivity disorder
     Dosage: 30 MILLIGRAM, QD
     Route: 065
     Dates: start: 2017

REACTIONS (4)
  - Product availability issue [Unknown]
  - Insurance issue [Unknown]
  - Inability to afford medication [Unknown]
  - Product dispensing issue [Unknown]
